FAERS Safety Report 5718449-3 (Version None)
Quarter: 2008Q2

REPORT INFORMATION
  Report Type: 
  Country: None (occurrence: None)
  Receive Date: 20080425
  Receipt Date: 20080325
  Transmission Date: 20081010
  Serious: No
  Sender: FDA-Public Use
  Company Number: US-JNJFOC-20080306708

PATIENT
  Age: 25 Year
  Sex: Male

DRUGS (2)
  1. INVEGA [Suspect]
     Indication: UNEVALUABLE EVENT
     Route: 048
  2. SEROQUEL [Concomitant]

REACTIONS (1)
  - WEIGHT INCREASED [None]
